FAERS Safety Report 5166063-3 (Version None)
Quarter: 2006Q4

REPORT INFORMATION
  Report Type: 
  Country: None (occurrence: None)
  Receive Date: 20061206
  Receipt Date: 20061129
  Transmission Date: 20070319
  Serious: Yes (Hospitalization, Disabling, Other)
  Sender: FDA-Public Use
  Company Number: US-MERCK-0612USA00010

PATIENT
  Age: 75 Year
  Sex: Female

DRUGS (2)
  1. ZOCOR [Suspect]
     Indication: HYPERLIPIDAEMIA
     Route: 048
     Dates: end: 20061122
  2. SINGULAIR [Concomitant]
     Route: 065

REACTIONS (4)
  - ASTHENIA [None]
  - HELICOBACTER PYLORI IDENTIFICATION TEST POSITIVE [None]
  - ORTHOSTATIC HYPOTENSION [None]
  - URINARY TRACT INFECTION [None]
